FAERS Safety Report 6785969-2 (Version None)
Quarter: 2010Q2

REPORT INFORMATION
  Report Type: 
  Country: None (occurrence: None)
  Receive Date: 20100622
  Receipt Date: 20100622
  Transmission Date: 20101027
  Serious: Yes (Other)
  Sender: FDA-Public Use
  Company Number: None

PATIENT

DRUGS (1)
  1. ROCURONIUM BROMIDE [Suspect]
     Indication: ANAESTHESIA PROCEDURE
     Dosage: 130MG OVER 3 HRS IV; THIS CASE
     Route: 042
     Dates: start: 20100506, end: 20100506

REACTIONS (1)
  - THERAPEUTIC RESPONSE DECREASED [None]
